FAERS Safety Report 8560379-6 (Version None)
Quarter: 2012Q3

REPORT INFORMATION
  Report Type: 
  Country: None (occurrence: None)
  Receive Date: 20120802
  Receipt Date: 20120726
  Transmission Date: 20120928
  Serious: Yes (Death)
  Sender: FDA-Public Use
  Company Number: JP-EISAI INC-E7389-01597-CLI-JP

PATIENT
  Sex: Female
  Weight: 62 kg

DRUGS (20)
  1. HALAVEN [Suspect]
     Indication: METASTASES TO GALLBLADDER
  2. RABEPRAZOLE SODIUM [Concomitant]
     Route: 048
  3. LASIX [Concomitant]
     Route: 048
  4. VOLTAREN [Concomitant]
  5. FAMOTIDINE [Concomitant]
     Route: 048
  6. LENDORMIN [Concomitant]
     Route: 048
  7. MOTILIUM [Concomitant]
     Route: 048
  8. MERISLON [Concomitant]
     Route: 048
  9. LIVACT [Concomitant]
     Route: 048
  10. HALAVEN [Suspect]
     Indication: METASTASES TO LIVER
  11. CELEBREX [Concomitant]
     Route: 048
  12. GOREISAN [Concomitant]
     Route: 048
  13. HALAVEN [Suspect]
     Indication: BREAST CANCER RECURRENT
     Route: 041
     Dates: start: 20110803, end: 20110922
  14. HALAVEN [Suspect]
     Indication: METASTASES TO LYMPH NODES
  15. OXYCODONE HYDROCHLORIDE [Concomitant]
     Route: 048
  16. KAKKON-TO [Concomitant]
     Route: 048
  17. HALAVEN [Suspect]
     Indication: METASTASES TO PERITONEUM
  18. FENTANYL CITRATE [Concomitant]
  19. PRIMPERAN TAB [Concomitant]
     Route: 048
  20. LEVOFLOXACIN [Concomitant]
     Route: 048

REACTIONS (1)
  - PULMONARY HAEMORRHAGE [None]
